FAERS Safety Report 24833687 (Version 1)
Quarter: 2025Q1

REPORT INFORMATION
  Report Type: Spontaneous
  Country: US (occurrence: US)
  Receive Date: 20250113
  Receipt Date: 20250113
  Transmission Date: 20250409
  Serious: Yes (Hospitalization, Other)
  Sender: AUROBINDO
  Company Number: US-MLMSERVICE-20241226-PI324756-00306-1

PATIENT
  Age: 51 Year
  Sex: Female

DRUGS (3)
  1. MYCOPHENOLIC ACID [Suspect]
     Active Substance: MYCOPHENOLIC ACID
     Indication: Product used for unknown indication
     Dosage: 750 MILLIGRAM, TWO TIMES A DAY
     Route: 048
  2. PREDNISONE [Suspect]
     Active Substance: PREDNISONE
     Indication: Immunosuppression
     Dosage: 2.5 MILLIGRAM, ONCE A DAY
     Route: 065
  3. TACROLIMUS [Suspect]
     Active Substance: TACROLIMUS
     Indication: Immunosuppressant drug therapy
     Dosage: 4 MILLIGRAM, TWO TIMES A DAY
     Route: 048

REACTIONS (2)
  - Lower gastrointestinal haemorrhage [Recovered/Resolved]
  - Histoplasmosis disseminated [Recovered/Resolved]
